FAERS Safety Report 22175622 (Version 1)
Quarter: 2023Q2

REPORT INFORMATION
  Report Type: Report from Study
  Country: EG (occurrence: EG)
  Receive Date: 20230405
  Receipt Date: 20230405
  Transmission Date: 20230721
  Serious: Yes (Other)
  Sender: FDA-Public Use
  Company Number: EG-002147023-NVSC2023EG074518

PATIENT
  Age: 34 Year
  Sex: Female

DRUGS (4)
  1. COSENTYX [Suspect]
     Active Substance: SECUKINUMAB
     Indication: Ankylosing spondylitis
     Dosage: 1 DOSAGE FORM, QMO (STARTED 1 YEAR AGO)
     Route: 058
  2. ANTI-COX II [Concomitant]
     Indication: Pain in extremity
     Dosage: UNK
     Route: 065
     Dates: start: 202303
  3. ANTI-COX II [Concomitant]
     Indication: Inflammation
  4. ANTI-COX II [Concomitant]
     Indication: Myalgia

REACTIONS (4)
  - Back pain [Not Recovered/Not Resolved]
  - C-reactive protein increased [Unknown]
  - Drug ineffective [Not Recovered/Not Resolved]
  - Incorrect dose administered [Not Recovered/Not Resolved]
